FAERS Safety Report 5546706-2 (Version None)
Quarter: 2007Q4

REPORT INFORMATION
  Report Type: 
  Country: None (occurrence: None)
  Receive Date: 20071211
  Receipt Date: 20071129
  Transmission Date: 20080405
  Serious: Yes (Life-Threatening, Hospitalization)
  Sender: FDA-Public Use
  Company Number: FR-JNJFOC-20071201162

PATIENT
  Sex: Female

DRUGS (10)
  1. TRAMADOL HCL [Suspect]
     Indication: DRUG USE FOR UNKNOWN INDICATION
     Route: 048
     Dates: start: 20071025, end: 20071031
  2. PRIMPERAN INJ [Suspect]
     Indication: DRUG USE FOR UNKNOWN INDICATION
     Route: 048
     Dates: start: 20071026, end: 20071031
  3. CORDARONE [Concomitant]
     Route: 065
  4. CARDENSIEL [Concomitant]
     Route: 065
  5. LASIX [Concomitant]
     Route: 048
  6. INIPOMP [Concomitant]
     Route: 065
  7. KARDEGIC [Concomitant]
     Route: 065
  8. DOMPERIDONE [Concomitant]
     Route: 065
  9. ACTISKENAN [Concomitant]
     Route: 065
  10. DURAGESIC-100 [Concomitant]
     Route: 065

REACTIONS (3)
  - CONFUSIONAL STATE [None]
  - CYTOLYTIC HEPATITIS [None]
  - HEPATIC FAILURE [None]
